FAERS Safety Report 9713516 (Version 1)
Quarter: 2013Q4

REPORT INFORMATION
  Report Type: Spontaneous
  Country: US (occurrence: None)
  Receive Date: 20131122
  Receipt Date: 20131122
  Transmission Date: 20140711
  Serious: Yes (Hospitalization, Other)
  Sender: FDA-Public Use
  Company Number: AUR-APL-2013-09656

PATIENT
  Age: 32 Year
  Sex: Male

DRUGS (1)
  1. AMOXICILLIN (AMOXICILLIN) [Suspect]
     Indication: PRODUCT USED FOR UNKNOWN INDICATION

REACTIONS (8)
  - Dyspnoea [None]
  - Swollen tongue [None]
  - Rash [None]
  - Hypotension [None]
  - Anaphylactic reaction [None]
  - Congenital megaureter [None]
  - Urticaria [None]
  - Erythema [None]
